FAERS Safety Report 4509141-1 (Version None)
Quarter: 2004Q4

REPORT INFORMATION
  Report Type: 
  Country: None (occurrence: None)
  Receive Date: 20041025
  Receipt Date: 20031121
  Transmission Date: 20050328
  Serious: Yes (Other)
  Sender: FDA-Public Use
  Company Number: NSADSS2003014255

PATIENT

DRUGS (1)
  1. REMICADE [Suspect]
     Indication: CROHN'S DISEASE
     Dosage: 1 IN 1 AS NECESSARY, INTRAVENOUS DRIP
     Route: 041

REACTIONS (2)
  - ANTINUCLEAR ANTIBODY POSITIVE [None]
  - SYSTEMIC LUPUS ERYTHEMATOSUS [None]
